FAERS Safety Report 10871567 (Version 1)
Quarter: 2015Q1

REPORT INFORMATION
  Report Type: Spontaneous
  Country: US (occurrence: None)
  Receive Date: 20150223
  Receipt Date: 20150223
  Transmission Date: 20150721
  Serious: Yes (Other)
  Sender: FDA-Public Use
  Company Number: None

PATIENT
  Age: 55 Year
  Sex: Female
  Weight: 68.04 kg

DRUGS (3)
  1. GENERIC NORCO [Suspect]
     Active Substance: ACETAMINOPHEN\HYDROCODONE BITARTRATE
     Indication: CHRONIC OBSTRUCTIVE PULMONARY DISEASE
     Route: 048
     Dates: start: 201401
  2. PREDNISONE GENERIC [Suspect]
     Active Substance: PREDNISONE
     Indication: FRACTURE
     Route: 048
     Dates: start: 201401
  3. PREDNISONE GENERIC [Suspect]
     Active Substance: PREDNISONE
     Indication: BACK INJURY
     Route: 048
     Dates: start: 201401

REACTIONS (9)
  - Abdominal distension [None]
  - Dyspnoea [None]
  - Rash erythematous [None]
  - Discomfort [None]
  - Malaise [None]
  - Drug ineffective [None]
  - Confusional state [None]
  - Hyperhidrosis [None]
  - Lung disorder [None]

NARRATIVE: CASE EVENT DATE: 20140103
